FAERS Safety Report 8877920 (Version 1)
Quarter: 2012Q4

REPORT INFORMATION
  Report Type: 
  Country: US (occurrence: US)
  Receive Date: 20121025
  Receipt Date: 20121025
  Transmission Date: 20130627
  Serious: No
  Sender: FDA-Public Use
  Company Number: US-AMGEN-USASP2012020261

PATIENT
  Age: 81 Year
  Sex: Female
  Weight: 47.62 kg

DRUGS (10)
  1. ENBREL [Suspect]
     Indication: RHEUMATOID ARTHRITIS
     Dosage: 50 mg, qwk
     Route: 058
  2. NOVOLIN [Concomitant]
     Route: 058
  3. LEVOTHYROXIN [Concomitant]
     Dosage: 75 mug, UNK
     Route: 048
  4. PREDNISONE [Concomitant]
     Dosage: 1 mg, UNK
     Route: 048
  5. LIPITOR [Concomitant]
     Dosage: 10 mg, UNK
     Route: 048
  6. KLONOPIN [Concomitant]
     Dosage: 0.5 mg, UNK
     Route: 048
  7. ARAVA [Concomitant]
     Dosage: 10 mg, UNK
     Route: 048
  8. CALCIUM 500+D [Concomitant]
     Route: 048
  9. MULTIVITAMIN                       /00097801/ [Concomitant]
     Route: 048
  10. LEXAPRO [Concomitant]
     Dosage: 5 mg, UNK
     Route: 048

REACTIONS (1)
  - Infected bunion [Recovered/Resolved]
